FAERS Safety Report 7124923-8 (Version None)
Quarter: 2010Q4

REPORT INFORMATION
  Report Type: 
  Country: None (occurrence: None)
  Receive Date: 20101112
  Receipt Date: 20101104
  Transmission Date: 20110411
  Serious: Yes (Life-Threatening, Hospitalization, Other)
  Sender: FDA-Public Use
  Company Number: IDA-00456

PATIENT
  Sex: Male

DRUGS (7)
  1. PROPRANOLOL [Suspect]
     Dosage: 10 MG BID ORAL FORMULATION: TABLET
     Route: 048
     Dates: start: 20051214, end: 20060126
  2. SUNITINIB MALATE [Suspect]
     Indication: RENAL CELL CARCINOMA
     Dosage: 50 MG DAILY ORAL
     Route: 048
     Dates: start: 20060113, end: 20060125
  3. GABAPENTIN [Concomitant]
  4. ORAMORPH SR [Concomitant]
  5. PROZAC [Concomitant]
  6. (ZOPICLONE) [Concomitant]
  7. MORPHINE SULFATE [Concomitant]

REACTIONS (33)
  - ABDOMINAL PAIN [None]
  - BASE EXCESS INCREASED [None]
  - BLOOD ALBUMIN DECREASED [None]
  - BLOOD BICARBONATE DECREASED [None]
  - BLOOD CHLORIDE DECREASED [None]
  - BLOOD PH INCREASED [None]
  - BLOOD PHOSPHORUS DECREASED [None]
  - BLOOD POTASSIUM DECREASED [None]
  - C-REACTIVE PROTEIN INCREASED [None]
  - CARDIAC ARREST [None]
  - CARDIAC TAMPONADE [None]
  - CHOLELITHIASIS [None]
  - CONVULSION [None]
  - DIARRHOEA [None]
  - DRUG INTERACTION [None]
  - HAEMOGLOBIN DECREASED [None]
  - HEART RATE DECREASED [None]
  - HEPATOMEGALY [None]
  - HYDRONEPHROSIS [None]
  - HYPERTENSION [None]
  - HYPOCALCAEMIA [None]
  - HYPOTENSION [None]
  - INTRACRANIAL PRESSURE INCREASED [None]
  - ISCHAEMIC HEPATITIS [None]
  - PAIN [None]
  - PERICARDIAL EFFUSION [None]
  - PLATELET COUNT DECREASED [None]
  - PO2 INCREASED [None]
  - PUPILS UNEQUAL [None]
  - TORSADE DE POINTES [None]
  - VENTRICULAR TACHYCARDIA [None]
  - VOMITING [None]
  - WHITE BLOOD CELL COUNT INCREASED [None]
